FAERS Safety Report 25168589 (Version 1)
Quarter: 2025Q2

REPORT INFORMATION
  Report Type: Spontaneous
  Country: JP (occurrence: JP)
  Receive Date: 20250407
  Receipt Date: 20250407
  Transmission Date: 20250716
  Serious: Yes (Other)
  Sender: OTSUKA
  Company Number: JP-MMM-Otsuka-QT30D2K6

PATIENT
  Age: 53 Year
  Sex: Female

DRUGS (6)
  1. BUSULFEX [Suspect]
     Active Substance: BUSULFAN
     Indication: Allogenic bone marrow transplantation therapy
     Route: 042
  2. FLUDARABINE PHOSPHATE [Suspect]
     Active Substance: FLUDARABINE PHOSPHATE
     Indication: Allogenic bone marrow transplantation therapy
     Route: 065
  3. MELPHALAN [Suspect]
     Active Substance: MELPHALAN
     Indication: Allogenic bone marrow transplantation therapy
     Route: 065
  4. TACROLIMUS [Suspect]
     Active Substance: TACROLIMUS
     Indication: Prophylaxis against graft versus host disease
     Route: 065
  5. METHOTREXATE [Suspect]
     Active Substance: METHOTREXATE
     Indication: Prophylaxis against graft versus host disease
     Route: 065
  6. ICLUSIG [Concomitant]
     Active Substance: PONATINIB HYDROCHLORIDE
     Indication: Chronic myeloid leukaemia
     Route: 065

REACTIONS (1)
  - Inappropriate antidiuretic hormone secretion [Recovering/Resolving]
